FAERS Safety Report 9897392 (Version 2)
Quarter: 2014Q2

REPORT INFORMATION
  Report Type: Spontaneous
  Country: IT (occurrence: IT)
  Receive Date: 20140214
  Receipt Date: 20140603
  Transmission Date: 20141212
  Serious: Yes (Other)
  Sender: FDA-Public Use
  Company Number: IT-BRISTOL-MYERS SQUIBB COMPANY-20145819

PATIENT
  Age: 53 Year
  Sex: Male

DRUGS (7)
  1. REYATAZ CAPS 300 MG [Suspect]
     Indication: ANTIRETROVIRAL THERAPY
     Route: 048
     Dates: start: 20140122, end: 20140126
  2. NORVIR [Suspect]
     Indication: ANTIRETROVIRAL THERAPY
     Route: 048
     Dates: start: 20140122, end: 20140126
  3. TRUVADA [Suspect]
     Indication: ANTIRETROVIRAL THERAPY
     Dosage: 1DF=TRUVADA 200/245 MG TABS DOSAGE/1/UNIT/DAILY
     Route: 048
     Dates: start: 20140122, end: 20140126
  4. BACTRIM [Concomitant]
     Dosage: 1DF=160+800 MG TABS DOSAGE/1/UNIT
     Route: 048
  5. DIFLUCAN [Concomitant]
     Route: 048
  6. ZITROMAX [Concomitant]
     Dosage: ZITROMAX AVIUM 600 MG TABS DOSAGE/1200MG/?ZITROMAX AVIUM 600 MG 2 TABS/DIE.
     Route: 048
  7. DIBASE [Concomitant]
     Dosage: 1DF=10.000 IU/ML ORAL DROPS SOLUTION DOSAGE/30/DROPS/?DIBASE 10.000 IU/ML 30 DROPS/WEEKLY
     Route: 048

REACTIONS (3)
  - Jaundice [Unknown]
  - Abdominal pain [Unknown]
  - Renal failure [Unknown]
